FAERS Safety Report 8430497-1 (Version None)
Quarter: 2012Q2

REPORT INFORMATION
  Report Type: 
  Country: None (occurrence: None)
  Receive Date: 20120606
  Receipt Date: 20120606
  Transmission Date: 20120825
  Serious: Yes (Life-Threatening, Hospitalization)
  Sender: FDA-Public Use
  Company Number: None

PATIENT
  Age: 60 Year
  Sex: Male
  Weight: 83.5 kg

DRUGS (2)
  1. WARFARIN SODIUM [Suspect]
     Dosage: 3 MG OTHER PO
     Route: 048
     Dates: end: 20120526
  2. ASPIRIN [Suspect]
     Dosage: 81 MG EVERY DAY PO
     Route: 048
     Dates: end: 20120526

REACTIONS (4)
  - PRESYNCOPE [None]
  - HYPERHIDROSIS [None]
  - ERUCTATION [None]
  - GASTRIC HAEMORRHAGE [None]
